FAERS Safety Report 12030183 (Version 1)
Quarter: 2016Q1

REPORT INFORMATION
  Report Type: Report from Study
  Country: US (occurrence: US)
  Receive Date: 20160207
  Receipt Date: 20160207
  Transmission Date: 20160526
  Serious: No
  Sender: FDA-Public Use
  Company Number: US-ABBVIE-15K-163-1505234-00

PATIENT
  Age: 55 Year
  Sex: Female

DRUGS (1)
  1. HUMIRA [Suspect]
     Active Substance: ADALIMUMAB
     Indication: RHEUMATOID ARTHRITIS
     Route: 058
     Dates: start: 20150506, end: 20151030

REACTIONS (5)
  - Nasal mucosal discolouration [Recovering/Resolving]
  - Pyrexia [Recovered/Resolved]
  - Rhinorrhoea [Recovering/Resolving]
  - Sinus congestion [Recovering/Resolving]
  - Injection site reaction [Recovered/Resolved]

NARRATIVE: CASE EVENT DATE: 20151028
